FAERS Safety Report 13031368 (Version 1)
Quarter: 2016Q4

REPORT INFORMATION
  Report Type: Spontaneous
  Country: US (occurrence: US)
  Receive Date: 20161215
  Receipt Date: 20161215
  Transmission Date: 20170207
  Serious: Yes (Other)
  Sender: FDA-Public Use
  Company Number: US-SA-2016SA210735

PATIENT
  Sex: Female

DRUGS (1)
  1. FERRLECIT [Suspect]
     Active Substance: SODIUM FERRIC GLUCONATE COMPLEX
     Dosage: DOSE 125
     Route: 065

REACTIONS (4)
  - Eye swelling [Unknown]
  - Exposure during pregnancy [Unknown]
  - Anaphylactic reaction [Unknown]
  - Throat tightness [Unknown]
